FAERS Safety Report 6415742-6 (Version None)
Quarter: 2009Q4

REPORT INFORMATION
  Report Type: 
  Country: None (occurrence: None)
  Receive Date: 20091022
  Receipt Date: 20050614
  Transmission Date: 20100525
  Serious: Yes (Hospitalization, Other)
  Sender: FDA-Public Use
  Company Number: 2009011041

PATIENT
  Age: 44 Year
  Sex: Female
  Weight: 159 kg

DRUGS (11)
  1. ACTIQ [Suspect]
     Indication: DEMYELINATION
     Dosage: 800 MCG, 6-8 A DAY, BU
     Route: 002
     Dates: start: 20050101
  2. METHOTREXATE [Suspect]
     Indication: AUTOIMMUNE DISORDER
  3. OXYCONTIN [Concomitant]
  4. FOLIC ACID [Concomitant]
  5. NEXIUM [Concomitant]
  6. ZELNORM /01470301/ (TEGASEROD) [Concomitant]
  7. PLAQUENIL /00072601/ (HYDROCHLOROQUINE) [Concomitant]
  8. AMBIEN [Concomitant]
  9. IMITREX /01044801/ (SUMATRIPTAN) [Concomitant]
  10. ZANAFLEX [Concomitant]
  11. TOPAMAX [Suspect]

REACTIONS (7)
  - CONTUSION [None]
  - DEHYDRATION [None]
  - DIARRHOEA [None]
  - DRUG TOXICITY [None]
  - FALL [None]
  - HEPATIC FAILURE [None]
  - ROAD TRAFFIC ACCIDENT [None]
